FAERS Safety Report 4315779-7 (Version None)
Quarter: 2004Q1

REPORT INFORMATION
  Report Type: 
  Country: None (occurrence: None)
  Receive Date: 20040309
  Receipt Date: 20040223
  Transmission Date: 20041129
  Serious: Yes (Hospitalization, Other)
  Sender: FDA-Public Use
  Company Number: USA031152812

PATIENT
  Age: 76 Year
  Sex: Female

DRUGS (2)
  1. FORTEO [Suspect]
     Indication: OSTEOPOROSIS
     Dosage: 1 DSG FORM/4 WEEK
     Dates: start: 20030101, end: 20040124
  2. MIACALCIN [Concomitant]

REACTIONS (3)
  - FALL [None]
  - HAND FRACTURE [None]
  - SPINAL FRACTURE [None]
